FAERS Safety Report 9416306 (Version 1)
Quarter: 2013Q3

REPORT INFORMATION
  Report Type: Report from Study
  Country: CN (occurrence: CN)
  Receive Date: 20130724
  Receipt Date: 20130724
  Transmission Date: 20140515
  Serious: Yes (Other)
  Sender: FDA-Public Use
  Company Number: CN-ROCHE-1250937

PATIENT
  Sex: Female
  Weight: 45 kg

DRUGS (5)
  1. CELLCEPT [Suspect]
     Indication: LIVER TRANSPLANT
     Route: 048
     Dates: start: 20090514
  2. CELLCEPT [Suspect]
     Route: 048
  3. TACROLIMUS [Suspect]
     Indication: LIVER TRANSPLANT
     Route: 048
  4. TACROLIMUS [Suspect]
     Route: 048
     Dates: start: 20090514
  5. ENTECAVIR [Concomitant]
     Indication: HEPATITIS B

REACTIONS (11)
  - Hepatitis B [Recovering/Resolving]
  - Renal failure acute [Recovered/Resolved]
  - Splenomegaly [Not Recovered/Not Resolved]
  - White blood cell count decreased [Not Recovered/Not Resolved]
  - Platelet count decreased [Not Recovered/Not Resolved]
  - Globulin abnormal [Not Recovered/Not Resolved]
  - Immunosuppressant drug level increased [Not Recovered/Not Resolved]
  - Anaemia [Not Recovered/Not Resolved]
  - Purpura [Not Recovered/Not Resolved]
  - Dizziness [Not Recovered/Not Resolved]
  - Abdominal pain upper [Not Recovered/Not Resolved]
